FAERS Safety Report 22635133 (Version 2)
Quarter: 2023Q4

REPORT INFORMATION
  Report Type: Spontaneous
  Country: JP (occurrence: JP)
  Receive Date: 20230623
  Receipt Date: 20231011
  Transmission Date: 20240110
  Serious: Yes (Other)
  Sender: FDA-Public Use
  Company Number: JP-SUN PHARMACEUTICAL INDUSTRIES LTD-2023RR-395689

PATIENT
  Age: 73 Year
  Sex: Female

DRUGS (6)
  1. OCTREOTIDE [Suspect]
     Active Substance: OCTREOTIDE
     Indication: Ascites
     Dosage: 200 MICROGRAM, DAILY
     Route: 058
  2. BISOPROLOL [Suspect]
     Active Substance: BISOPROLOL\BISOPROLOL FUMARATE
     Indication: Myocardial infarction
     Dosage: UNK
     Route: 048
  3. SPIRONOLACTONE [Suspect]
     Active Substance: SPIRONOLACTONE
     Indication: Ascites
     Dosage: 50 MILLIGRAM, DAILY
     Route: 065
  4. FUROSEMIDE [Suspect]
     Active Substance: FUROSEMIDE
     Indication: Ascites
     Dosage: 40 MILLIGRAM, DAILY
     Route: 065
  5. TOLVAPTAN [Suspect]
     Active Substance: TOLVAPTAN
     Indication: Ascites
     Dosage: 7.5 MILLIGRAM, DAILY
     Route: 065
  6. TRICHLORMETHIAZIDE [Suspect]
     Active Substance: TRICHLORMETHIAZIDE
     Indication: Ascites
     Dosage: 1 MILLIGRAM, DAILY
     Route: 065

REACTIONS (2)
  - Drug ineffective [Unknown]
  - Therapeutic product effect incomplete [Unknown]
